FAERS Safety Report 24716425 (Version 1)
Quarter: 2024Q4

REPORT INFORMATION
  Report Type: Spontaneous
  Country: US (occurrence: US)
  Receive Date: 20241210
  Receipt Date: 20241210
  Transmission Date: 20250114
  Serious: No
  Sender: AMGEN
  Company Number: US-AMGEN-USASP2024239481

PATIENT

DRUGS (1)
  1. CARFILZOMIB [Suspect]
     Active Substance: CARFILZOMIB
     Indication: Acute myeloid leukaemia refractory
     Dosage: 36 MILLIGRAM/SQ. METER
     Route: 065

REACTIONS (1)
  - Therapy partial responder [Unknown]
